FAERS Safety Report 6980501-2 (Version None)
Quarter: 2010Q3

REPORT INFORMATION
  Report Type: 
  Country: None (occurrence: None)
  Receive Date: 20100914
  Receipt Date: 20100902
  Transmission Date: 20110219
  Serious: Yes (Other)
  Sender: FDA-Public Use
  Company Number: PHHY2010JP47543

PATIENT
  Age: 65 Year
  Sex: Male

DRUGS (2)
  1. NEORAL [Suspect]
     Indication: INTERSTITIAL LUNG DISEASE
     Dosage: 100 MG DAILY
     Route: 048
     Dates: start: 20100206, end: 20100211
  2. NEORAL [Suspect]
     Dosage: 200 MG DAILY
     Route: 048
     Dates: start: 20100212, end: 20100629

REACTIONS (3)
  - IMMUNOGLOBULINS DECREASED [None]
  - OPPORTUNISTIC INFECTION [None]
  - PYREXIA [None]
